FAERS Safety Report 9140298 (Version 1)
Quarter: 2013Q1

REPORT INFORMATION
  Report Type: Spontaneous
  Country: CA (occurrence: CA)
  Receive Date: 20130305
  Receipt Date: 20130305
  Transmission Date: 20140127
  Serious: Yes (Other)
  Sender: FDA-Public Use
  Company Number: CA-PFIZER INC-2013074025

PATIENT
  Age: 12 Year
  Sex: Male

DRUGS (2)
  1. IBUPROFEN [Suspect]
     Indication: HEADACHE
     Dosage: 200 MG, UNK
     Route: 065
  2. IBUPROFEN [Suspect]
     Dosage: 400 MG, UNK

REACTIONS (1)
  - Anaphylactic reaction [Recovered/Resolved]
